FAERS Safety Report 6110485-0 (Version None)
Quarter: 2009Q1

REPORT INFORMATION
  Report Type: 
  Country: None (occurrence: None)
  Receive Date: 20090310
  Receipt Date: 20090227
  Transmission Date: 20090719
  Serious: Yes (Other)
  Sender: FDA-Public Use
  Company Number: PHEH2008US08893

PATIENT
  Sex: Female

DRUGS (4)
  1. RECLAST [Suspect]
     Dosage: 5 MG, ONCE/SINGLE
     Dates: start: 20080814, end: 20080814
  2. FISH OIL [Concomitant]
  3. FIBERCON (POLYCARBOPHIL CALCIUM) [Concomitant]
     Dosage: 2 TABLETS QHS
     Route: 048
  4. VITAMIN D [Concomitant]
     Dosage: 800 IU, QD
     Route: 048

REACTIONS (18)
  - ANOREXIA [None]
  - ARTHRALGIA [None]
  - BURSITIS [None]
  - C-REACTIVE PROTEIN INCREASED [None]
  - FATIGUE [None]
  - GAIT DISTURBANCE [None]
  - HOT FLUSH [None]
  - JOINT STIFFNESS [None]
  - JOINT SWELLING [None]
  - MALAISE [None]
  - MYALGIA [None]
  - NAUSEA [None]
  - NUCLEAR MAGNETIC RESONANCE IMAGING ABNORMAL [None]
  - PAIN IN EXTREMITY [None]
  - RASH [None]
  - RHEUMATOID FACTOR INCREASED [None]
  - SOMNOLENCE [None]
  - TENDONITIS [None]
